FAERS Safety Report 23623832 (Version 4)
Quarter: 2025Q3

REPORT INFORMATION
  Report Type: Spontaneous
  Country: US (occurrence: US)
  Receive Date: 20240312
  Receipt Date: 20250804
  Transmission Date: 20251021
  Serious: Yes (Other)
  Sender: PFIZER
  Company Number: US-PFIZER INC-202400060337

PATIENT
  Age: 70 Year
  Sex: Male
  Weight: 103.42 kg

DRUGS (1)
  1. TIKOSYN [Suspect]
     Active Substance: DOFETILIDE
     Indication: Atrial fibrillation
     Dosage: 500 UG, 1X/DAY

REACTIONS (2)
  - Ventricular tachycardia [Unknown]
  - Off label use [Unknown]
